FAERS Safety Report 19253282 (Version 3)
Quarter: 2021Q2

REPORT INFORMATION
  Report Type: Spontaneous
  Country: US (occurrence: US)
  Receive Date: 20210513
  Receipt Date: 20210618
  Transmission Date: 20210717
  Serious: No
  Sender: FDA-Public Use
  Company Number: US-ASTRAZENECA-2021A403791

PATIENT
  Age: 61 Year
  Sex: Female
  Weight: 98 kg

DRUGS (5)
  1. OTHER MEDICATION [Concomitant]
     Active Substance: UNSPECIFIED INGREDIENT
  2. BYDUREON [Suspect]
     Active Substance: EXENATIDE
     Indication: DIABETES MELLITUS
     Route: 058
  3. BYDUREON BCISE [Suspect]
     Active Substance: EXENATIDE
     Indication: DIABETES MELLITUS
     Route: 058
     Dates: start: 20210502
  4. BYDUREON BCISE [Suspect]
     Active Substance: EXENATIDE
     Indication: GLYCOSYLATED HAEMOGLOBIN
     Route: 058
     Dates: start: 20210502
  5. BYDUREON [Suspect]
     Active Substance: EXENATIDE
     Indication: GLYCOSYLATED HAEMOGLOBIN
     Route: 058

REACTIONS (5)
  - Injection site haemorrhage [Recovered/Resolved]
  - Injection site injury [Recovered/Resolved]
  - Incorrect dose administered by device [Unknown]
  - Needle issue [Unknown]
  - Intentional device misuse [Unknown]
